FAERS Safety Report 6734515-8 (Version None)
Quarter: 2010Q2

REPORT INFORMATION
  Report Type: 
  Country: None (occurrence: None)
  Receive Date: 20100520
  Receipt Date: 20100518
  Transmission Date: 20101027
  Serious: Yes (Death, Hospitalization)
  Sender: FDA-Public Use
  Company Number: NL-WYE-H12409609

PATIENT
  Sex: Male
  Weight: 58 kg

DRUGS (3)
  1. TORISEL [Suspect]
     Indication: RENAL CELL CARCINOMA
     Route: 042
     Dates: start: 20091022, end: 20091125
  2. TOLBUTAMIDE [Concomitant]
     Indication: BLOOD GLUCOSE INCREASED
     Dosage: NOT PROVIDED
     Route: 048
     Dates: start: 20091118, end: 20091125
  3. BEVACIZUMAB [Suspect]
     Indication: RENAL CELL CARCINOMA
     Dosage: 620 MG 1/2 WEEKS
     Route: 042
     Dates: start: 20091022, end: 20091125

REACTIONS (3)
  - MUCOSAL INFLAMMATION [None]
  - PNEUMONIA [None]
  - SOMNOLENCE [None]
